FAERS Safety Report 9149173 (Version 1)
Quarter: 2013Q1

REPORT INFORMATION
  Report Type: Spontaneous
  Country: JP (occurrence: None)
  Receive Date: 20130130
  Receipt Date: 20130130
  Transmission Date: 20140127
  Serious: Yes (Hospitalization)
  Sender: FDA-Public Use
  Company Number: DSA_62146_2013

PATIENT
  Age: 50 Year
  Sex: Female

DRUGS (8)
  1. FLUOROURACIL (FLUOROURACIL) [Suspect]
     Indication: COLON CANCER
     Route: 040
     Dates: start: 20080519, end: 20080519
  2. OXALIPLATIN (OXALIPLATIN) [Suspect]
     Indication: COLON CANCER
     Route: 041
     Dates: start: 20080519, end: 20080519
  3. CALCIUM LEVOFOLINATE [Concomitant]
  4. ANTIBIOTICS [Concomitant]
  5. AVASTIN [Concomitant]
  6. NASEA [Concomitant]
  7. ZANTAC [Concomitant]
  8. DEXAMETHASONE SODIUM PHOSPHATE [Concomitant]

REACTIONS (5)
  - Malignant pleural effusion [None]
  - Anaphylactoid reaction [None]
  - Shock [None]
  - Colon cancer [None]
  - Condition aggravated [None]
